FAERS Safety Report 7551247-7 (Version None)
Quarter: 2011Q2

REPORT INFORMATION
  Report Type: 
  Country: None (occurrence: None)
  Receive Date: 20110616
  Receipt Date: 20110603
  Transmission Date: 20111010
  Serious: Yes (Other)
  Sender: FDA-Public Use
  Company Number: PHHY2011BR49522

PATIENT
  Sex: Female

DRUGS (6)
  1. DIOVAN [Suspect]
     Indication: HYPERTENSION
     Dosage: 1 DF, 320 MG
     Route: 048
     Dates: end: 20110301
  2. ANASTROZOLE [Concomitant]
     Indication: ENDOCRINE DISORDER
     Dosage: 1 DF, 1 MG
     Route: 048
     Dates: start: 20101001
  3. HYDROCHLOROTHIAZIDE [Concomitant]
     Indication: HYPERTENSION
     Dosage: 1 DF, 25 MG
     Route: 048
  4. CLONIDINE HYDROCHLORIDE [Concomitant]
     Indication: HYPERTENSION
     Dosage: 6 DF, 0.100 MG
     Route: 048
  5. BENICAR [Concomitant]
     Indication: HYPERTENSION
     Dosage: 20 MG, UNK
  6. EXFORGE [Suspect]
     Indication: HYPERTENSION
     Dosage: 1 DF, 320 MG VALS AND 10 MG AMLO
     Dates: start: 20080901

REACTIONS (2)
  - HYPERTENSION [None]
  - OPTIC ISCHAEMIC NEUROPATHY [None]
